FAERS Safety Report 12584006 (Version 7)
Quarter: 2019Q4

REPORT INFORMATION
  Report Type: Report from Study
  Country: US (occurrence: US)
  Receive Date: 20160722
  Receipt Date: 20191105
  Transmission Date: 20200122
  Serious: Yes (Other)
  Sender: FDA-Public Use
  Company Number: PHHY2016US099498

PATIENT
  Age: 26 Year
  Sex: Female

DRUGS (2)
  1. GILENYA [Suspect]
     Active Substance: FINGOLIMOD HYDROCHLORIDE
     Indication: MULTIPLE SCLEROSIS
     Dosage: UNK, QD
     Route: 048
  2. ACTHAR [Concomitant]
     Active Substance: CORTICOTROPIN
     Indication: MULTIPLE SCLEROSIS RELAPSE
     Dosage: UNK
     Route: 065
     Dates: start: 20150711, end: 20150715

REACTIONS (11)
  - Appendicitis [Unknown]
  - White blood cell count decreased [Unknown]
  - Fatigue [Unknown]
  - Lymphocyte count decreased [Unknown]
  - Dizziness postural [Unknown]
  - Vertigo [Unknown]
  - Body tinea [Unknown]
  - Vision blurred [Unknown]
  - Eye pain [Recovered/Resolved]
  - Neck pain [Unknown]
  - Myalgia [Unknown]

NARRATIVE: CASE EVENT DATE: 20140502
